FAERS Safety Report 5102764-0 (Version None)
Quarter: 2006Q3

REPORT INFORMATION
  Report Type: 
  Country: None (occurrence: None)
  Receive Date: 20060907
  Receipt Date: 20060904
  Transmission Date: 20061208
  Serious: Yes (Disabling)
  Sender: FDA-Public Use
  Company Number: OSCN-NO-0608L-0242

PATIENT
  Age: 56 Year
  Sex: Male

DRUGS (11)
  1. OMNISCAN [Suspect]
     Indication: DRUG USE FOR UNKNOWN INDICATION
     Dosage: SINGLE DOSE
  2. HEPARIN-FRACTION, SODIUM SALT (ENOXAPARIN SODIUM) [Concomitant]
  3. AMIODARONE (AMIODARONE) [Concomitant]
  4. CALCIUM CARBONATE (CALACIUM CARBONATE) [Concomitant]
  5. ERYTHROPOIETIN (ERYTHROPOIETIN ALFA) [Concomitant]
  6. CACITRIOL (CALCITRIOL) [Concomitant]
  7. OMEPRAZOLE [Concomitant]
  8. BISOPROLOL FUMARATE [Concomitant]
  9. UNSPECIFIED CORTICOSEROIDS [Concomitant]
  10. MYCOPHNOLATE MOFETIL (MYCOPHENOLAE MOFETIL) [Concomitant]
  11. TACROLIMUS (TACROLIMUS) [Concomitant]

REACTIONS (1)
  - SKIN FIBROSIS [None]
